FAERS Safety Report 5124124-9 (Version None)
Quarter: 2006Q4

REPORT INFORMATION
  Report Type: 
  Country: None (occurrence: None)
  Receive Date: 20061010
  Receipt Date: 20060309
  Transmission Date: 20070319
  Serious: No
  Sender: FDA-Public Use
  Company Number: US-BRISTOL-MYERS SQUIBB COMPANY-13309364

PATIENT

DRUGS (1)
  1. AVAPRO [Suspect]

REACTIONS (4)
  - DRY EYE [None]
  - DRY MOUTH [None]
  - LIP DRY [None]
  - TOOTH DISORDER [None]
